FAERS Safety Report 6854754-5 (Version None)
Quarter: 2010Q3

REPORT INFORMATION
  Report Type: 
  Country: None (occurrence: None)
  Receive Date: 20100717
  Receipt Date: 20080113
  Transmission Date: 20110219
  Serious: No
  Sender: FDA-Public Use
  Company Number: US-PFIZER INC-2008004606

PATIENT
  Sex: Female
  Weight: 53.636 kg

DRUGS (9)
  1. CHAMPIX [Suspect]
     Indication: SMOKING CESSATION THERAPY
     Dates: start: 20071224
  2. PREDNISONE [Concomitant]
     Indication: PNEUMONIA
  3. MONTELUKAST [Concomitant]
  4. ADVAIR DISKUS 100/50 [Concomitant]
  5. ALBUTEROL [Concomitant]
     Indication: PNEUMONIA
  6. IPRATROPIUM BROMIDE [Concomitant]
     Indication: PNEUMONIA
  7. LIBRAX [Concomitant]
  8. XANAX [Concomitant]
  9. NICOTINE [Concomitant]
     Dates: end: 20071223

REACTIONS (4)
  - ABNORMAL DREAMS [None]
  - DRUG INEFFECTIVE [None]
  - NAUSEA [None]
  - PYREXIA [None]
